FAERS Safety Report 15849915 (Version 2)
Quarter: 2019Q1

REPORT INFORMATION
  Report Type: Spontaneous
  Country: KR (occurrence: KR)
  Receive Date: 20190121
  Receipt Date: 20190123
  Transmission Date: 20190417
  Serious: Yes (Death, Other)
  Sender: FDA-Public Use
  Company Number: KR-009507513-1901KOR005107

PATIENT
  Sex: Female

DRUGS (5)
  1. IRCODON [Concomitant]
     Active Substance: OXYCODONE HYDROCHLORIDE
  2. HUONS KAROS SUSPENSION [Concomitant]
  3. TARGIN [Concomitant]
     Active Substance: NALOXONE HYDROCHLORIDE\OXYCODONE HYDROCHLORIDE
  4. KEYTRUDA [Suspect]
     Active Substance: PEMBROLIZUMAB
     Indication: GASTRIC CANCER STAGE IV
     Dosage: UNK
     Dates: start: 20181221
  5. ENCOVER [Concomitant]
     Dosage: SOLUTION

REACTIONS (2)
  - Malignant neoplasm progression [Fatal]
  - Product use in unapproved indication [Unknown]

NARRATIVE: CASE EVENT DATE: 20181221
